FAERS Safety Report 6841690-3 (Version None)
Quarter: 2010Q3

REPORT INFORMATION
  Report Type: 
  Country: None (occurrence: None)
  Receive Date: 20100714
  Receipt Date: 20070713
  Transmission Date: 20110219
  Serious: No
  Sender: FDA-Public Use
  Company Number: US-PFIZER INC-2007059373

PATIENT
  Sex: Male
  Weight: 79.545 kg

DRUGS (3)
  1. CHANTIX [Suspect]
     Indication: SMOKING CESSATION THERAPY
     Dates: start: 20070301, end: 20070501
  2. PEGASYS [Concomitant]
  3. ANTIDEPRESSANTS [Concomitant]
     Indication: DEPRESSION

REACTIONS (4)
  - DECREASED APPETITE [None]
  - DRY MOUTH [None]
  - DYSPNOEA [None]
  - SOMNOLENCE [None]
